FAERS Safety Report 12547324 (Version 2)
Quarter: 2017Q1

REPORT INFORMATION
  Report Type: Spontaneous
  Country: US (occurrence: US)
  Receive Date: 20160711
  Receipt Date: 20170119
  Transmission Date: 20170428
  Serious: No
  Sender: FDA-Public Use
  Company Number: US-EGALET US INC-US-2016EGA000124

PATIENT

DRUGS (2)
  1. SPRIX [Suspect]
     Active Substance: KETOROLAC TROMETHAMINE
     Indication: RIB FRACTURE
     Dosage: 15.75 MG, EACH NOSTRIL EVERY 6 HOURS
     Route: 045
     Dates: start: 20160215, end: 20160216
  2. SPRIX [Suspect]
     Active Substance: KETOROLAC TROMETHAMINE
     Indication: MUSCULOSKELETAL CHEST PAIN

REACTIONS (6)
  - Rhinorrhoea [Recovered/Resolved]
  - Nasal discomfort [Recovered/Resolved]
  - Drug ineffective [Unknown]
  - Burning sensation [Recovered/Resolved]
  - Product label issue [Unknown]
  - Product use issue [Unknown]

NARRATIVE: CASE EVENT DATE: 201602
